FAERS Safety Report 5049136-5 (Version None)
Quarter: 2006Q3

REPORT INFORMATION
  Report Type: 
  Country: None (occurrence: None)
  Receive Date: 20060712
  Receipt Date: 20060310
  Transmission Date: 20061208
  Serious: No
  Sender: FDA-Public Use
  Company Number: US-GLAXOSMITHKLINE-A0598059A

PATIENT
  Age: 39 Year
  Sex: Female

DRUGS (4)
  1. IMITREX [Suspect]
     Indication: MIGRAINE
     Dosage: 100MG AS REQUIRED
     Route: 048
     Dates: start: 20040101
  2. FIORICET [Concomitant]
  3. XANAX [Concomitant]
  4. BIRTH CONTROL [Concomitant]
     Route: 061

REACTIONS (1)
  - DRUG INEFFECTIVE [None]
